FAERS Safety Report 9530167 (Version 2)
Quarter: 2013Q3

REPORT INFORMATION
  Report Type: Spontaneous
  Country: CA (occurrence: CA)
  Receive Date: 20130917
  Receipt Date: 20130917
  Transmission Date: 20140515
  Serious: Yes (Other)
  Sender: FDA-Public Use
  Company Number: CA-PFIZER INC-2013147975

PATIENT
  Age: 39 Year
  Sex: Female

DRUGS (2)
  1. TECTA [Suspect]
     Indication: ABDOMINAL PAIN UPPER
     Dosage: 40 MG, 1X/DAY
     Route: 048
  2. METOCLOPRAMIDE HCL [Suspect]
     Indication: ABDOMINAL PAIN UPPER
     Dosage: 10 MG, 3X/DAY
     Route: 048

REACTIONS (1)
  - Abnormal dreams [Not Recovered/Not Resolved]
